FAERS Safety Report 6271400-2 (Version None)
Quarter: 2009Q3

REPORT INFORMATION
  Report Type: 
  Country: None (occurrence: None)
  Receive Date: 20090717
  Receipt Date: 20090709
  Transmission Date: 20100115
  Serious: Yes (Other)
  Sender: FDA-Public Use
  Company Number: PL-ROCHE-643570

PATIENT
  Age: 49 Year
  Sex: Female

DRUGS (6)
  1. CEFTRIAXONE SODIUM [Suspect]
     Indication: DRUG USE FOR UNKNOWN INDICATION
     Route: 065
  2. METRONIDAZOL [Suspect]
     Indication: DRUG USE FOR UNKNOWN INDICATION
     Route: 065
  3. ZENTEL [Concomitant]
     Indication: ANTIBIOTIC THERAPY
  4. CLINDAMYCIN [Concomitant]
     Indication: ANTIBIOTIC THERAPY
     Dosage: DRUG REPORTED AS CLYNDAMYCIN
  5. DEXAVEN [Concomitant]
  6. EUTHYROX [Concomitant]
     Indication: THYROIDECTOMY

REACTIONS (3)
  - HYDROCEPHALUS [None]
  - NEOPLASM MALIGNANT [None]
  - PAIN [None]
